FAERS Safety Report 5752326-7 (Version None)
Quarter: 2008Q2

REPORT INFORMATION
  Report Type: 
  Country: None (occurrence: None)
  Receive Date: 20080529
  Receipt Date: 20080522
  Transmission Date: 20081010
  Serious: Yes (Other)
  Sender: FDA-Public Use
  Company Number: US-ASTRAZENECA-2008UW10545

PATIENT
  Age: 53 Year
  Sex: Female
  Weight: 77.1 kg

DRUGS (11)
  1. SEROQUEL [Suspect]
     Indication: BIPOLAR DISORDER
     Route: 048
     Dates: start: 20000101
  2. SEROQUEL [Suspect]
     Indication: INSOMNIA
     Route: 048
     Dates: start: 20000101
  3. EFFEXOR [Concomitant]
  4. CLONAZEPAM [Concomitant]
  5. SYNTHROID [Concomitant]
  6. OCTOSE [Concomitant]
  7. NOVOLOG [Concomitant]
  8. LANTUS [Concomitant]
  9. AVAPRO [Concomitant]
  10. TRICOR [Concomitant]
  11. ATENOLOL [Concomitant]

REACTIONS (4)
  - DIPLOPIA [None]
  - MIOSIS [None]
  - PHOTOPHOBIA [None]
  - VISUAL DISTURBANCE [None]
